FAERS Safety Report 4912092-1 (Version None)
Quarter: 2006Q1

REPORT INFORMATION
  Report Type: 
  Country: None (occurrence: None)
  Receive Date: 20060215
  Receipt Date: 20050711
  Transmission Date: 20060701
  Serious: Yes (Other)
  Sender: FDA-Public Use
  Company Number: PHBS2005CA09916

PATIENT
  Sex: Male

DRUGS (11)
  1. PARLODEL [Suspect]
     Indication: PARKINSON'S DISEASE
     Route: 048
  2. ATORVASTATIN CALCIUM [Concomitant]
  3. ERGOTAMINE TARTRATE AND CAFFEINE [Concomitant]
  4. PINDOLOL [Concomitant]
  5. ASCORBIC ACID W/VITAMIN B NOS [Concomitant]
  6. DOMPERIDONE [Concomitant]
  7. FLUDROCORTISONE ACETATE [Concomitant]
  8. CARBIDOPA W/LEVODOPA [Concomitant]
  9. CARBIDOPA W/LEVODOPA [Concomitant]
  10. CALCIUM CARBONATE [Concomitant]
  11. VITALUX [Concomitant]

REACTIONS (2)
  - DELUSIONAL DISORDER, UNSPECIFIED TYPE [None]
  - HALLUCINATION [None]
